FAERS Safety Report 4437305-4 (Version None)
Quarter: 2004Q3

REPORT INFORMATION
  Report Type: 
  Country: None (occurrence: None)
  Receive Date: 20040726
  Receipt Date: 20040325
  Transmission Date: 20050211
  Serious: No
  Sender: FDA-Public Use
  Company Number: USA040363180

PATIENT
  Age: 79 Year
  Sex: Female

DRUGS (1)
  1. FORTEO [Suspect]
     Dates: start: 20040311, end: 20040325

REACTIONS (3)
  - BACK PAIN [None]
  - DIARRHOEA [None]
  - MUSCLE CRAMP [None]
